FAERS Safety Report 17558590 (Version 1)
Quarter: 2020Q1

REPORT INFORMATION
  Report Type: Report from Study
  Country: IT (occurrence: IT)
  Receive Date: 20200319
  Receipt Date: 20200319
  Transmission Date: 20200409
  Serious: Yes (Other)
  Sender: FDA-Public Use
  Company Number: IT-BAXTER-2020BAX005764

PATIENT
  Age: 41 Year
  Sex: Female
  Weight: 54 kg

DRUGS (2)
  1. ENDOXAN BAXTER [Suspect]
     Active Substance: CYCLOPHOSPHAMIDE
     Indication: BREAST CANCER
     Route: 042
     Dates: start: 20200206
  2. EPIRUBICIN TEVA [Suspect]
     Active Substance: EPIRUBICIN
     Indication: BREAST CANCER
     Dosage: SOLUTION FOR INJECTION OR FOR INFUSION
     Route: 042
     Dates: start: 20200206

REACTIONS (3)
  - Hyperthermia [Recovering/Resolving]
  - Neutrophilia [Recovering/Resolving]
  - Leukocytosis [Recovering/Resolving]

NARRATIVE: CASE EVENT DATE: 20200227
